FAERS Safety Report 18367905 (Version 4)
Quarter: 2020Q4

REPORT INFORMATION
  Report Type: Report from Study
  Country: DE (occurrence: DE)
  Receive Date: 20201009
  Receipt Date: 20201217
  Transmission Date: 20210114
  Serious: Yes (Other)
  Sender: FDA-Public Use
  Company Number: DE-MYLANLABS-2020M1085083

PATIENT
  Age: 55 Year
  Sex: Male

DRUGS (16)
  1. DEKRISTOL [Concomitant]
     Active Substance: CHOLECALCIFEROL
     Dosage: 1000 INTERNATIONAL UNIT, MONTHLY
  2. PREGABALIN. [Concomitant]
     Active Substance: PREGABALIN
     Dosage: 0.75 MILLIGRAM, QD (FOR THE NIGHT)
  3. OCREVUS [Suspect]
     Active Substance: OCRELIZUMAB
     Indication: RELAPSING-REMITTING MULTIPLE SCLEROSIS
     Dosage: 300 MILLIGRAM, 14 DAY
     Route: 042
     Dates: start: 20200320
  4. PREGABALIN. [Concomitant]
     Active Substance: PREGABALIN
     Dosage: 0.5 MILLIGRAM, QD(FOR THE NIGHT)
  5. AMLODIPIN                          /00972401/ [Concomitant]
     Active Substance: AMLODIPINE BESYLATE
     Dosage: 5 MILLIGRAM, QD(IN THE EVENING)
  6. OXYGEN. [Concomitant]
     Active Substance: OXYGEN
     Indication: CLUSTER HEADACHE
     Dosage: 15 LITER
     Route: 045
  7. PREGABALIN. [Concomitant]
     Active Substance: PREGABALIN
     Dosage: 50 MILLIGRAM, QD
     Route: 065
  8. SYMBICORT [Concomitant]
     Active Substance: BUDESONIDE\FORMOTEROL FUMARATE DIHYDRATE
     Dosage: UNK(160 / 4.5 2 PUMPS)
  9. ASPIRIN. [Concomitant]
     Active Substance: ASPIRIN
     Dosage: 100 MILLIGRAM, QD(IN THE EVENING)
  10. VERAPAMIL [Concomitant]
     Active Substance: VERAPAMIL HYDROCHLORIDE
     Dosage: UNK, BID(120 RET)
  11. LATANOPROST. [Concomitant]
     Active Substance: LATANOPROST
     Dosage: UNK(AT NIGHT)
  12. OCREVUS [Suspect]
     Active Substance: OCRELIZUMAB
     Dosage: 600 MILLIGRAM
     Route: 042
     Dates: start: 20201006
  13. IMIGRAN                            /01044801/ [Concomitant]
     Active Substance: SUMATRIPTAN
     Indication: CLUSTER HEADACHE
     Dosage: UNK(15 L O2 SPRAYED AT BROW OVER NOSE)
  14. PREGABALIN. [Concomitant]
     Active Substance: PREGABALIN
     Dosage: 50 MILLIGRAM (0.5 DAY)
     Route: 065
  15. DEKRISTOL [Concomitant]
     Active Substance: CHOLECALCIFEROL
     Dosage: 2000 INTERNATIONAL UNIT, MONTHLY
  16. PRAMIPEXOLE. [Suspect]
     Active Substance: PRAMIPEXOLE
     Indication: PRODUCT USED FOR UNKNOWN INDICATION
     Dosage: UNK (0.35 MG IN THE MORNING AND 0.26 MG RET. AT NIGHT)
     Route: 065

REACTIONS (16)
  - Dizziness [Recovering/Resolving]
  - Skin fissures [Recovering/Resolving]
  - Muscle spasticity [Not Recovered/Not Resolved]
  - Dry skin [Recovering/Resolving]
  - Gait disturbance [Not Recovered/Not Resolved]
  - Skin exfoliation [Not Recovered/Not Resolved]
  - Fatigue [Recovered/Resolved]
  - Feeling cold [Not Recovered/Not Resolved]
  - Dysstasia [Not Recovered/Not Resolved]
  - Pallor [Recovered/Resolved]
  - Uhthoff^s phenomenon [Recovering/Resolving]
  - Rash [Not Recovered/Not Resolved]
  - Cough [Recovered/Resolved]
  - Nasopharyngitis [Recovered/Resolved]
  - Myalgia [Recovering/Resolving]
  - Paraesthesia [Not Recovered/Not Resolved]

NARRATIVE: CASE EVENT DATE: 20200515
